FAERS Safety Report 7033403-X (Version None)
Quarter: 2010Q4

REPORT INFORMATION
  Report Type: 
  Country: None (occurrence: None)
  Receive Date: 20101007
  Receipt Date: 20100928
  Transmission Date: 20110411
  Serious: Yes (Other)
  Sender: FDA-Public Use
  Company Number: CI-B.I. PHARMACEUTICALS,INC./RIDGEFIELD-2010-DE-05427GD

PATIENT
  Sex: Female
  Weight: 82 kg

DRUGS (3)
  1. NEVIRAPINE [Suspect]
     Indication: HIV INFECTION WHO CLINICAL STAGE I
  2. STAVUDINE [Suspect]
     Indication: HIV INFECTION WHO CLINICAL STAGE I
     Dosage: 30 MG
  3. LAMIVUDINE [Suspect]
     Indication: HIV INFECTION WHO CLINICAL STAGE I

REACTIONS (6)
  - DECREASED APPETITE [None]
  - FATIGUE [None]
  - HYPERLACTACIDAEMIA [None]
  - NAUSEA [None]
  - VOMITING [None]
  - WEIGHT DECREASED [None]
